FAERS Safety Report 9720943 (Version 2)
Quarter: 2014Q1

REPORT INFORMATION
  Report Type: Spontaneous
  Country: US (occurrence: US)
  Receive Date: 20131129
  Receipt Date: 20140115
  Transmission Date: 20141002
  Serious: Yes (Death, Hospitalization)
  Sender: FDA-Public Use
  Company Number: US-SA-2013SA123730

PATIENT
  Age: 70 Year
  Sex: Male
  Weight: 87.99 kg

DRUGS (1)
  1. NASACORT AQ [Suspect]
     Indication: NASAL CONGESTION
     Dosage: 2 SPRAY IN EACH NOSTRIL ONCE A DAY
     Route: 065

REACTIONS (2)
  - Death [Fatal]
  - Adverse event [Unknown]
